FAERS Safety Report 18550269 (Version 1)
Quarter: 2020Q4

REPORT INFORMATION
  Report Type: Spontaneous
  Country: DE (occurrence: DE)
  Receive Date: 20201126
  Receipt Date: 20201126
  Transmission Date: 20210114
  Serious: Yes (Disabling)
  Sender: FDA-Public Use
  Company Number: DE-AMGEN-DEUSP2020190120

PATIENT
  Age: 73 Year
  Sex: Female
  Weight: 90 kg

DRUGS (11)
  1. REPATHA [Suspect]
     Active Substance: EVOLOCUMAB
     Indication: HYPERLIPIDAEMIA
     Dosage: 140 MILLIGRAM
     Route: 065
     Dates: end: 20200814
  2. BIPRETERAX [INDAPAMIDE;PERINDOPRIL ERBUMINE] [Concomitant]
     Active Substance: INDAPAMIDE\PERINDOPRIL ERBUMINE
     Dosage: DAILY DOSE: 1 DF DOSAGE FORM EVERY DAYS
  3. MONTELUKAST [Concomitant]
     Active Substance: MONTELUKAST SODIUM
     Dosage: DAILY DOSE: 10 MG MILLGRAM(S) EVERY DAYS
  4. FOSTER [Concomitant]
     Active Substance: BECLOMETHASONE\FORMOTEROL
     Dosage: DAILY DOSE: 3 DF DOSAGE FORM EVERY DAYS
     Route: 055
  5. LANTUS [Concomitant]
     Active Substance: INSULIN GLARGINE
     Dosage: 16 INTERNATIONAL UNIT, QD
  6. CLOPIDOGREL [Concomitant]
     Active Substance: CLOPIDOGREL BISULFATE
     Dosage: DAILY DOSE: 75 MG MILLGRAM(S) EVERY DAYS
  7. METRONIDAZOL [METRONIDAZOLE] [Concomitant]
     Active Substance: METRONIDAZOLE
     Dosage: 1200 MILLIGRAM, QD
  8. CIPROFLOXACIN. [Concomitant]
     Active Substance: CIPROFLOXACIN
     Dosage: DAILY DOSE: 500 MG MILLGRAM(S) EVERY DAYS
     Route: 065
  9. BISOPROLOL [Concomitant]
     Active Substance: BISOPROLOL
     Dosage: 10 MILLIGRAM, QD
  10. TRULICITY [Concomitant]
     Active Substance: DULAGLUTIDE
     Dosage: 1.5 MILLIGRAM, QWK
  11. DEKRISTOL [Concomitant]
     Active Substance: CHOLECALCIFEROL
     Dosage: DAILY DOSE: 20000 IU INTERNATIONAL UNIT(S) EVERY 2 WEEKS

REACTIONS (2)
  - Diarrhoea [Not Recovered/Not Resolved]
  - Abdominal discomfort [Recovered/Resolved]

NARRATIVE: CASE EVENT DATE: 20200809
